FAERS Safety Report 8803871 (Version 1)
Quarter: 2012Q4

REPORT INFORMATION
  Report Type: 
  Country: US (occurrence: US)
  Receive Date: 20120924
  Receipt Date: 20120924
  Transmission Date: 20130627
  Serious: No
  Sender: FDA-Public Use
  Company Number: US-PFIZER INC-2012232885

PATIENT
  Age: 56 Year
  Sex: Male
  Weight: 56.24 kg

DRUGS (3)
  1. ADVIL CONGESTION RELIEF [Suspect]
     Indication: SINUS DISORDER
     Dosage: 200 mg, daily
     Dates: start: 2012, end: 2012
  2. VENLAFAXINE [Concomitant]
     Indication: DEPRESSION
     Dosage: 27.5 mg, daily
  3. ATIVAN [Concomitant]
     Indication: MUSCLE SPASMS
     Dosage: 2 mg, daily

REACTIONS (1)
  - Drug ineffective [Unknown]
